FAERS Safety Report 6908387-2 (Version None)
Quarter: 2010Q3

REPORT INFORMATION
  Report Type: 
  Country: None (occurrence: None)
  Receive Date: 20100805
  Receipt Date: 20100723
  Transmission Date: 20110219
  Serious: Yes (Hospitalization)
  Sender: FDA-Public Use
  Company Number: FR-JNJFOC-20100800907

PATIENT
  Sex: Female

DRUGS (14)
  1. TOPALGIC [Suspect]
     Indication: PRODUCT USED FOR UNKNOWN INDICATION
     Route: 048
  2. FLAGYL [Suspect]
     Indication: PRODUCT USED FOR UNKNOWN INDICATION
     Route: 048
  3. HEPARINE CHOAY [Suspect]
     Indication: PRODUCT USED FOR UNKNOWN INDICATION
     Route: 058
  4. AUGMENTIN '125' [Concomitant]
  5. AMOXICILLIN [Concomitant]
  6. FLUINDIONE [Concomitant]
  7. LASIX [Concomitant]
  8. PERINDOPRIL ERBUMINE [Concomitant]
  9. MOLSIDOMINE [Concomitant]
  10. NITROGLYCERIN [Concomitant]
  11. SPIRIVA [Concomitant]
  12. QVAR 40 [Concomitant]
  13. SINGULAIR [Concomitant]
  14. FORMOTEROL [Concomitant]

REACTIONS (1)
  - THROMBOCYTOPENIA [None]
